FAERS Safety Report 10451087 (Version 3)
Quarter: 2014Q4

REPORT INFORMATION
  Report Type: Spontaneous
  Country: US (occurrence: US)
  Receive Date: 20140912
  Receipt Date: 20141030
  Transmission Date: 20150528
  Serious: Yes (Other)
  Sender: FDA-Public Use
  Company Number: US-PFIZER INC-2014252218

PATIENT
  Age: 41 Year
  Sex: Female
  Weight: 108.39 kg

DRUGS (15)
  1. VOLTAREN [Concomitant]
     Active Substance: DICLOFENAC SODIUM
     Dosage: 75 MG, 2X/DAY
  2. POTASSIUM CHLORIDE. [Concomitant]
     Active Substance: POTASSIUM CHLORIDE
     Dosage: 20 MEQ, 1X/DAY
  3. ZYRTEC [Concomitant]
     Active Substance: CETIRIZINE HYDROCHLORIDE
     Indication: SINUS DISORDER
     Dosage: 10 MG, 1X/DAY
  4. CETIRIZINE [Concomitant]
     Active Substance: CETIRIZINE HYDROCHLORIDE
     Dosage: 10 MG, DAILY
  5. NORCO [Concomitant]
     Active Substance: ACETAMINOPHEN\HYDROCODONE BITARTRATE
     Dosage: UNK (325/10 MG, 2X/DAY AS NEEDED)
  6. LYRICA [Suspect]
     Active Substance: PREGABALIN
     Indication: NEURALGIA
  7. BUSPAR [Concomitant]
     Active Substance: BUSPIRONE HYDROCHLORIDE
     Dosage: 15 MG, 2X/DAY
  8. LYRICA [Suspect]
     Active Substance: PREGABALIN
     Indication: ABDOMINAL ADHESIONS
     Dosage: 150 MG, 2X/DAY
     Route: 048
     Dates: start: 2012
  9. LYRICA [Suspect]
     Active Substance: PREGABALIN
     Indication: ABDOMINAL PAIN
  10. ROBAXIN [Concomitant]
     Active Substance: METHOCARBAMOL
     Dosage: 750 MG, 3X/DAY
  11. LASIX [Concomitant]
     Active Substance: FUROSEMIDE
     Dosage: 40 MG, DAILY
  12. ZOCOR [Concomitant]
     Active Substance: SIMVASTATIN
     Dosage: 40 MG, DAILY
  13. ULTRAM [Concomitant]
     Active Substance: TRAMADOL HYDROCHLORIDE
     Dosage: 50 MG, 4X/DAY (EVERY SIX HOURS)
  14. COREG [Concomitant]
     Active Substance: CARVEDILOL
     Dosage: 6.25 MG, 2X/DAY
  15. NORCO [Concomitant]
     Active Substance: ACETAMINOPHEN\HYDROCODONE BITARTRATE
     Indication: PAIN
     Dosage: 1 DF (7.5MG/325MG), 2X/DAY

REACTIONS (2)
  - Arthropathy [Unknown]
  - Product use issue [Unknown]

NARRATIVE: CASE EVENT DATE: 2012
